FAERS Safety Report 11683536 (Version 1)
Quarter: 2015Q4

REPORT INFORMATION
  Report Type: Spontaneous
  Country: US (occurrence: US)
  Receive Date: 20151029
  Receipt Date: 20151029
  Transmission Date: 20160304
  Serious: No
  Sender: FDA-Public Use
  Company Number: US-TARO-2014TAR00558

PATIENT
  Sex: Male

DRUGS (5)
  1. CARBAMAZEPINE. [Suspect]
     Active Substance: CARBAMAZEPINE
  2. DILANTIN [Suspect]
     Active Substance: PHENYTOIN
  3. KEPPRA [Suspect]
     Active Substance: LEVETIRACETAM
  4. PROPRANOLOL [Suspect]
     Active Substance: PROPRANOLOL\PROPRANOLOL HYDROCHLORIDE
  5. VIMPAT [Suspect]
     Active Substance: LACOSAMIDE

REACTIONS (1)
  - Tremor [Unknown]
